FAERS Safety Report 14362673 (Version 2)
Quarter: 2019Q1

REPORT INFORMATION
  Report Type: Spontaneous
  Country: CA (occurrence: CA)
  Receive Date: 20180108
  Receipt Date: 20190117
  Transmission Date: 20190417
  Serious: Yes (Other)
  Sender: FDA-Public Use
  Company Number: CA-LEO PHARMA-306860

PATIENT
  Age: 49 Year
  Sex: Female

DRUGS (1)
  1. PICATO [Suspect]
     Active Substance: INGENOL MEBUTATE
     Indication: PRODUCT USED FOR UNKNOWN INDICATION
     Dosage: ONE APPLICATION/DAY
     Route: 061
     Dates: start: 20171219

REACTIONS (2)
  - Application site erythema [Unknown]
  - Burns first degree [Recovering/Resolving]

NARRATIVE: CASE EVENT DATE: 20171224
